FAERS Safety Report 11329679 (Version 1)
Quarter: 2015Q3

REPORT INFORMATION
  Report Type: Spontaneous
  Country: US (occurrence: None)
  Receive Date: 20150730
  Receipt Date: 20150730
  Transmission Date: 20151125
  Serious: No
  Sender: FDA-Public Use
  Company Number: None

PATIENT
  Age: 65 Year
  Sex: Male

DRUGS (13)
  1. ATORVASTATIN [Concomitant]
     Active Substance: ATORVASTATIN
  2. TORSEMIDE. [Concomitant]
     Active Substance: TORSEMIDE
  3. EPLERENONE. [Concomitant]
     Active Substance: EPLERENONE
  4. MULTIVITAMIN [Concomitant]
     Active Substance: VITAMINS
  5. INSULIN ASPART [Suspect]
     Active Substance: INSULIN ASPART
     Dosage: 3 UNITS, ONCE, SC
     Route: 058
  6. VALSARTAN. [Concomitant]
     Active Substance: VALSARTAN
  7. WARFARIN [Concomitant]
     Active Substance: WARFARIN
  8. BISACODYL. [Concomitant]
     Active Substance: BISACODYL
  9. INSULIN ASPART [Suspect]
     Active Substance: INSULIN ASPART
     Indication: HYPERGLYCAEMIA
     Dosage: 2 UNITS, DAILY, SC
     Route: 058
     Dates: start: 20150114
  10. ASA [Concomitant]
     Active Substance: ASPIRIN
  11. CARVEDILOL. [Concomitant]
     Active Substance: CARVEDILOL
  12. CLOPIDOGREL [Concomitant]
     Active Substance: CLOPIDOGREL BISULFATE
  13. SENNA [Concomitant]
     Active Substance: SENNA LEAF\SENNOSIDES\SENNOSIDES A AND B

REACTIONS (1)
  - Blood glucose decreased [None]

NARRATIVE: CASE EVENT DATE: 20150202
